FAERS Safety Report 6613942-3 (Version None)
Quarter: 2010Q1

REPORT INFORMATION
  Report Type: 
  Country: None (occurrence: None)
  Receive Date: 20100304
  Receipt Date: 20100301
  Transmission Date: 20100710
  Serious: Yes (Other)
  Sender: FDA-Public Use
  Company Number: B0636877A

PATIENT
  Sex: Male

DRUGS (2)
  1. ZELITREX [Suspect]
     Dosage: 500MG PER DAY
     Route: 048
     Dates: start: 20100215
  2. STRESAM [Concomitant]
     Indication: ANXIETY
     Dosage: 100MG TWICE PER DAY
     Route: 048
     Dates: start: 20100215

REACTIONS (3)
  - ABNORMAL DREAMS [None]
  - HALLUCINATION [None]
  - SOMNOLENCE [None]
